FAERS Safety Report 5834619-8 (Version None)
Quarter: 2008Q3

REPORT INFORMATION
  Report Type: 
  Country: None (occurrence: None)
  Receive Date: 20080805
  Receipt Date: 20080723
  Transmission Date: 20090109
  Serious: Yes (Hospitalization, Other)
  Sender: FDA-Public Use
  Company Number: US-ELI_LILLY_AND_COMPANY-US200806004387

PATIENT
  Age: 83 Year
  Sex: Female

DRUGS (13)
  1. CYMBALTA [Suspect]
     Indication: DEPRESSION
     Dosage: 30 MG, UNK
     Dates: start: 20071123, end: 20080701
  2. EFFEXOR [Concomitant]
  3. METHADONE HCL [Concomitant]
     Indication: BACK PAIN
  4. LEVOTHYROXINE SODIUM [Concomitant]
     Indication: HYPOTHYROIDISM
  5. DETROL /USA/ [Concomitant]
     Dates: end: 20080601
  6. PREDNISONE TAB [Concomitant]
     Indication: POLYMYALGIA RHEUMATICA
     Dosage: 2 MG, DAILY (1/D)
     Dates: start: 20070101
  7. TRIMETHOPRIM [Concomitant]
  8. COUMADIN [Concomitant]
     Indication: DEEP VEIN THROMBOSIS
  9. FOLIC ACID [Concomitant]
  10. VITAMIN B12 + FOLIC ACID [Concomitant]
     Route: 030
  11. LIDODERM [Concomitant]
     Indication: PAIN
  12. TIZANIDINE HCL [Concomitant]
     Indication: MUSCLE RELAXANT THERAPY
  13. MIACALCIN [Concomitant]
     Indication: OSTEOPOROSIS
     Dosage: UNK, DAILY (1/D)

REACTIONS (9)
  - CAROTID ARTERY OCCLUSION [None]
  - DRUG TOXICITY [None]
  - FATIGUE [None]
  - HYPERHIDROSIS [None]
  - HYPERTENSIVE CRISIS [None]
  - HYPOTENSION [None]
  - ORTHOSTATIC HYPOTENSION [None]
  - POLLAKIURIA [None]
  - TREMOR [None]
